FAERS Safety Report 15709106 (Version 1)
Quarter: 2018Q4

REPORT INFORMATION
  Report Type: Spontaneous
  Country: US (occurrence: US)
  Receive Date: 20181211
  Receipt Date: 20181211
  Transmission Date: 20190205
  Serious: No
  Sender: FDA-Public Use
  Company Number: US-AUROBINDO-AUR-APU-2018-027654

PATIENT
  Sex: Female
  Weight: 58.96 kg

DRUGS (2)
  1. MIRTAZAPINE TABLETS 15 MG [Suspect]
     Active Substance: MIRTAZAPINE
     Indication: SLEEP DISORDER
     Dosage: 7.5 MILLIGRAM
     Route: 065
     Dates: start: 201802
  2. MIRTAZAPINE TABLETS 15 MG [Suspect]
     Active Substance: MIRTAZAPINE
     Indication: ANXIETY

REACTIONS (3)
  - Sedation [Unknown]
  - Product use in unapproved indication [Unknown]
  - Dizziness [Unknown]
